FAERS Safety Report 20658280 (Version 9)
Quarter: 2022Q4

REPORT INFORMATION
  Report Type: Report from Study
  Country: GB (occurrence: GB)
  Receive Date: 20220331
  Receipt Date: 20221221
  Transmission Date: 20230113
  Serious: Yes (Death, Life-Threatening, Hospitalization, Other)
  Sender: FDA-Public Use
  Company Number: GB-EMA-DD-20171211-ajevhp-103059

PATIENT
  Age: 73 Year
  Sex: Female
  Weight: 72 kg

DRUGS (35)
  1. ALLOPURINOL [Suspect]
     Active Substance: ALLOPURINOL
     Indication: Prophylaxis
     Dosage: 3 MILLIGRAM, QD
     Route: 048
     Dates: start: 20160223, end: 20160228
  2. ALLOPURINOL [Suspect]
     Active Substance: ALLOPURINOL
     Indication: Plasma cell myeloma
     Dosage: 40 MILLIGRAM, QW
     Route: 048
     Dates: start: 20160223, end: 20160228
  3. ALLOPURINOL [Suspect]
     Active Substance: ALLOPURINOL
     Dosage: 3 MILLIGRAM, QD
     Route: 048
     Dates: start: 20160223, end: 20160321
  4. ALLOPURINOL [Suspect]
     Active Substance: ALLOPURINOL
     Dosage: 200 MILLIGRAM, QD
     Route: 048
  5. ALLOPURINOL [Suspect]
     Active Substance: ALLOPURINOL
     Dosage: 40 MILLIGRAM, QD
     Route: 048
     Dates: start: 20160315
  6. ALLOPURINOL [Suspect]
     Active Substance: ALLOPURINOL
     Dosage: 40 MILLIGRAM, QD
     Route: 048
     Dates: start: 20160223, end: 20160228
  7. ALLOPURINOL [Suspect]
     Active Substance: ALLOPURINOL
     Dosage: 40 MILLIGRAM, QW
     Route: 048
     Dates: start: 20160315
  8. ALLOPURINOL [Suspect]
     Active Substance: ALLOPURINOL
     Dosage: 200 MILLIGRAM, QD
     Route: 048
     Dates: start: 20160223, end: 20160321
  9. ALLOPURINOL [Suspect]
     Active Substance: ALLOPURINOL
     Dosage: 200 MILLIGRAM, QD
     Route: 048
     Dates: start: 20160223, end: 20160228
  10. DEXAMETHASONE [Suspect]
     Active Substance: DEXAMETHASONE
     Indication: Plasma cell myeloma
     Dosage: 40 MILLIGRAM, QW
     Route: 048
     Dates: start: 20160223, end: 20160315
  11. DEXAMETHASONE [Suspect]
     Active Substance: DEXAMETHASONE
     Dosage: 40 MILLIGRAM, QW, RECEIVED TILL 2-MAR-2016 AND ALSO RECEIVED 15-MAR-2016
     Route: 048
     Dates: start: 20160223, end: 20160302
  12. DEXAMETHASONE [Suspect]
     Active Substance: DEXAMETHASONE
     Dosage: 40 MILLIGRAM, QD  RECEIVED TILL 2-MAR-2016 AND ALSO RECEIVED 15-MAR-2016
     Route: 065
     Dates: start: 20160315
  13. DEXAMETHASONE [Suspect]
     Active Substance: DEXAMETHASONE
     Dosage: 40 MILLIGRAM, QW
     Route: 048
     Dates: start: 20160223, end: 20160315
  14. DEXAMETHASONE [Suspect]
     Active Substance: DEXAMETHASONE
     Dosage: 5.71 MILLIGRAM
     Route: 065
     Dates: start: 20160315
  15. DEXAMETHASONE [Suspect]
     Active Substance: DEXAMETHASONE
     Dosage: 40 MILLIGRAM
     Route: 048
     Dates: start: 20160223, end: 20160302
  16. DEXAMETHASONE [Suspect]
     Active Substance: DEXAMETHASONE
     Dosage: 40 MILLIGRAM, QW
     Route: 065
     Dates: start: 20160223, end: 20160315
  17. DEXAMETHASONE [Suspect]
     Active Substance: DEXAMETHASONE
     Dosage: 5.71 MILLIGRAM, QW
     Route: 048
     Dates: start: 20160223, end: 20160302
  18. DEXAMETHASONE [Suspect]
     Active Substance: DEXAMETHASONE
     Dosage: 40 MILLIGRAM
     Route: 048
     Dates: start: 20160315, end: 20160322
  19. POMALIDOMIDE [Suspect]
     Active Substance: POMALIDOMIDE
     Indication: Plasma cell myeloma
     Dosage: 84 MILLIGRAM, 28D CYCLE, 3 MILLIGRAM, 28-FEB-2016; ALSO RECEIVED 4 MG
     Route: 048
     Dates: start: 20160223, end: 20160321
  20. POMALIDOMIDE [Suspect]
     Active Substance: POMALIDOMIDE
     Dosage: 84 MILLIGRAM, 28 DAYS (3 MILLIGRAM)
     Route: 048
     Dates: start: 20160223, end: 20160315
  21. POMALIDOMIDE [Suspect]
     Active Substance: POMALIDOMIDE
     Dosage: 84 MILLIGRAM, 28 DAYS (3 MILLIGRAM)
     Route: 048
     Dates: start: 20160223, end: 20160228
  22. POMALIDOMIDE [Suspect]
     Active Substance: POMALIDOMIDE
     Dosage: 4 MILLIGRAM, 84 MILLIGRAM, 28 DAYS (3 MILLIGRAM)
     Route: 048
     Dates: start: 20160223, end: 20160321
  23. POMALIDOMIDE [Suspect]
     Active Substance: POMALIDOMIDE
     Dosage: 63 MILLIGRAM, 28D CYCLE
     Route: 048
     Dates: start: 20160223, end: 20160315
  24. POMALIDOMIDE [Suspect]
     Active Substance: POMALIDOMIDE
     Dosage: 3 MILLIGRAM
     Route: 048
     Dates: start: 20160223, end: 20160315
  25. POMALIDOMIDE [Suspect]
     Active Substance: POMALIDOMIDE
     Dosage: 3 MILLIGRAM
     Route: 048
     Dates: start: 20160223, end: 20160321
  26. POMALIDOMIDE [Suspect]
     Active Substance: POMALIDOMIDE
     Dosage: 4 MILLIGRAM, 84 MILLIGRAM, 28 DAYS (3 MILLIGRAM)
     Route: 048
     Dates: start: 20160223, end: 20160328
  27. POMALIDOMIDE [Suspect]
     Active Substance: POMALIDOMIDE
     Dosage: 40 MILLIGRAM (RECEIVED TILL 2-MAR-2016 AND ALSO RECEIVED 15-MAR-2016 (8 DAYS), 5.7143 MILLIGRAM  )
     Route: 065
     Dates: start: 20160315
  28. LENALIDOMIDE [Suspect]
     Active Substance: LENALIDOMIDE
     Indication: Prophylaxis
     Dosage: 200 MILLIGRAM, QD
     Route: 048
     Dates: start: 20160223
  29. LENALIDOMIDE [Suspect]
     Active Substance: LENALIDOMIDE
     Dosage: 40 MILLIGRAM, QD (200 MILLIGRAM)
     Route: 048
     Dates: start: 20160223, end: 20160228
  30. LENALIDOMIDE [Suspect]
     Active Substance: LENALIDOMIDE
     Dosage: 1400 MILLIGRAM
     Route: 065
  31. DALTEPARIN [Concomitant]
     Active Substance: DALTEPARIN
     Indication: Anticoagulant therapy
     Dosage: 5000 INTERNATIONAL UNIT
     Route: 065
     Dates: start: 20160223, end: 20160302
  32. DALTEPARIN [Concomitant]
     Active Substance: DALTEPARIN
     Dosage: 5000 INTERNATIONAL UNIT
     Route: 065
  33. DALTEPARIN [Concomitant]
     Active Substance: DALTEPARIN
     Dosage: 5000 INTERNATIONAL UNIT
     Route: 065
  34. DALTEPARIN [Concomitant]
     Active Substance: DALTEPARIN
     Dosage: 5000 INTERNATIONAL UNIT
     Route: 065
  35. OMEPRAZOLE [Concomitant]
     Active Substance: OMEPRAZOLE
     Indication: Product used for unknown indication
     Dosage: 20 MILLIGRAM, QD
     Route: 048
     Dates: start: 20160223

REACTIONS (10)
  - Pneumonia [Fatal]
  - Bone marrow failure [Fatal]
  - Plasma cell myeloma [Fatal]
  - Neutropenia [Fatal]
  - Off label use [Fatal]
  - Intentional product misuse [Fatal]
  - Thrombocytopenia [Fatal]
  - Rash [Fatal]
  - Acute kidney injury [Fatal]
  - Condition aggravated [Fatal]

NARRATIVE: CASE EVENT DATE: 20160301
